FAERS Safety Report 24817144 (Version 1)
Quarter: 2025Q1

REPORT INFORMATION
  Report Type: Spontaneous
  Country: US (occurrence: US)
  Receive Date: 20250108
  Receipt Date: 20250108
  Transmission Date: 20250409
  Serious: Yes (Other)
  Sender: Kilitch Healthcare
  Company Number: US-KHC-000217

PATIENT
  Sex: Male

DRUGS (1)
  1. POLYETHYLENE GLYCOL 400\PROPYLENE GLYCOL [Suspect]
     Active Substance: POLYETHYLENE GLYCOL 400\PROPYLENE GLYCOL
     Indication: Product used for unknown indication
     Route: 065

REACTIONS (3)
  - Vision blurred [Unknown]
  - Recalled product administered [Unknown]
  - Blindness transient [Unknown]

NARRATIVE: CASE EVENT DATE: 20230801
